FAERS Safety Report 8883632 (Version 1)
Quarter: 2012Q4

REPORT INFORMATION
  Report Type: Report from Study
  Country: BR (occurrence: BR)
  Receive Date: 20121102
  Receipt Date: 20121102
  Transmission Date: 20130627
  Serious: Yes (Other)
  Sender: FDA-Public Use
  Company Number: BR-ROCHE-1151658

PATIENT
  Age: 68 Year
  Sex: Female
  Weight: 51 kg

DRUGS (3)
  1. BEVACIZUMAB [Suspect]
     Indication: RECTAL CANCER
     Dosage: 8 infusions
     Route: 065
     Dates: start: 20110823, end: 20120227
  2. CAPECITABINE [Suspect]
     Indication: RECTAL CANCER
     Route: 065
     Dates: start: 20110823, end: 20120227
  3. OXALIPLATIN [Concomitant]
     Route: 065
     Dates: start: 20110823, end: 20120227

REACTIONS (1)
  - Disease progression [Unknown]
